FAERS Safety Report 8489318-3 (Version None)
Quarter: 2012Q3

REPORT INFORMATION
  Report Type: 
  Country: None (occurrence: None)
  Receive Date: 20120705
  Receipt Date: 20120629
  Transmission Date: 20120928
  Serious: Yes (Other)
  Sender: FDA-Public Use
  Company Number: US-PFIZER INC-2012157464

PATIENT

DRUGS (1)
  1. NEURONTIN [Suspect]
     Dosage: 300 MG, 3X/DAY

REACTIONS (3)
  - ASTHMA [None]
  - MUSCULOSKELETAL PAIN [None]
  - LIPID METABOLISM DISORDER [None]
